FAERS Safety Report 26189168 (Version 1)
Quarter: 2025Q4

REPORT INFORMATION
  Report Type: Spontaneous
  Country: US (occurrence: US)
  Receive Date: 20251223
  Receipt Date: 20251223
  Transmission Date: 20260117
  Serious: Yes (Life-Threatening, Hospitalization)
  Sender: ACCORD
  Company Number: US-MLMSERVICE-20251201-PI734597-00218-1

PATIENT
  Age: 62 Year
  Sex: Female

DRUGS (1)
  1. METHOTREXATE [Suspect]
     Active Substance: METHOTREXATE
     Indication: Rheumatoid arthritis
     Dosage: LOW-DOSE
     Route: 048

REACTIONS (6)
  - Myelosuppression [Recovering/Resolving]
  - Febrile neutropenia [Recovering/Resolving]
  - Epistaxis [Recovering/Resolving]
  - Mucosal inflammation [Recovering/Resolving]
  - Dermatitis [Recovering/Resolving]
  - Toxicity to various agents [Recovering/Resolving]
